FAERS Safety Report 13636096 (Version 1)
Quarter: 2017Q2

REPORT INFORMATION
  Report Type: Spontaneous
  Country: US (occurrence: US)
  Receive Date: 20170531
  Receipt Date: 20170531
  Transmission Date: 20170830
  Serious: No
  Sender: FDA-Public Use
  Company Number: US-ASTELLAS-1779289

PATIENT
  Sex: Female

DRUGS (2)
  1. TARCEVA [Suspect]
     Active Substance: ERLOTINIB HYDROCHLORIDE
     Indication: LUNG NEOPLASM MALIGNANT
     Route: 048
     Dates: start: 20150708
  2. MORPHINE [Concomitant]
     Active Substance: MORPHINE

REACTIONS (4)
  - Malaise [Unknown]
  - Somnolence [Unknown]
  - Urinary tract infection [Unknown]
  - Vomiting [Unknown]
